FAERS Safety Report 16798523 (Version 4)
Quarter: 2019Q3

REPORT INFORMATION
  Report Type: Report from Study
  Country: CN (occurrence: CN)
  Receive Date: 20190912
  Receipt Date: 20190917
  Transmission Date: 20191005
  Serious: Yes (Hospitalization)
  Sender: FDA-Public Use
  Company Number: CN-EISAI MEDICAL RESEARCH-EC-2019-062029

PATIENT
  Age: 67 Year
  Sex: Male
  Weight: 59 kg

DRUGS (5)
  1. LAMIVUDINE. [Concomitant]
     Active Substance: LAMIVUDINE
     Dates: start: 200709
  2. LENVATINIB [Suspect]
     Active Substance: LENVATINIB
     Indication: HEPATOCELLULAR CARCINOMA
     Dosage: 8 MILLIGRAM (BODY WEIGHT (BW){60 KG)
     Route: 048
     Dates: start: 20190820, end: 20190820
  3. PEMBROLIZUMAB. [Suspect]
     Active Substance: PEMBROLIZUMAB
     Indication: HEPATOCELLULAR CARCINOMA
     Dosage: BLINDED
     Route: 041
     Dates: start: 20190820, end: 20190820
  4. OMEPRAZOLE. [Concomitant]
     Active Substance: OMEPRAZOLE
     Dates: start: 200409
  5. ROCALTROL [Concomitant]
     Active Substance: CALCITRIOL
     Dates: start: 201502

REACTIONS (2)
  - Infection [Not Recovered/Not Resolved]
  - Hiccups [Recovered/Resolved]

NARRATIVE: CASE EVENT DATE: 20190820
